FAERS Safety Report 22213990 (Version 1)
Quarter: 2023Q2

REPORT INFORMATION
  Report Type: Spontaneous
  Country: None (occurrence: PT)
  Receive Date: 20230414
  Receipt Date: 20230414
  Transmission Date: 20230722
  Serious: Yes (Hospitalization)
  Sender: FDA-Public Use
  Company Number: PT-Canton Laboratories, LLC-2140386

PATIENT
  Age: 50 Year

DRUGS (6)
  1. NAPROSYN [Suspect]
     Active Substance: NAPROXEN
     Indication: Back pain
     Dates: start: 20230309, end: 20230309
  2. ACETAMINOPHEN\THIOCOLCHICOSIDE [Suspect]
     Active Substance: ACETAMINOPHEN\THIOCOLCHICOSIDE
  3. NEXIUM [Suspect]
     Active Substance: ESOMEPRAZOLE MAGNESIUM
  4. INDAPAMIDE\PERINDOPRIL [Suspect]
     Active Substance: INDAPAMIDE\PERINDOPRIL
  5. TEGRETOL [Suspect]
     Active Substance: CARBAMAZEPINE
  6. SIMVASTATIN [Suspect]
     Active Substance: SIMVASTATIN

REACTIONS (2)
  - Pancreatic steatosis [Unknown]
  - Pancreatitis acute [Recovered/Resolved]

NARRATIVE: CASE EVENT DATE: 20230312
